FAERS Safety Report 20340481 (Version 1)
Quarter: 2022Q1

REPORT INFORMATION
  Report Type: Spontaneous
  Country: GB (occurrence: None)
  Receive Date: 20220117
  Receipt Date: 20220117
  Transmission Date: 20220423
  Serious: Yes (Hospitalization)
  Sender: FDA-Public Use
  Company Number: 2022A012782

PATIENT
  Sex: Male

DRUGS (9)
  1. DAPAGLIFLOZIN [Suspect]
     Active Substance: DAPAGLIFLOZIN
     Route: 065
  2. BISOPROLOL [Concomitant]
     Active Substance: BISOPROLOL
  3. BUMETANIDE [Concomitant]
     Active Substance: BUMETANIDE
  4. DAPAGLIFLOZIN [Concomitant]
     Active Substance: DAPAGLIFLOZIN
  5. MEBEVERINE [Concomitant]
     Active Substance: MEBEVERINE
  6. RAMIPRIL [Concomitant]
     Active Substance: RAMIPRIL
  7. RIVAROXABAN [Concomitant]
     Active Substance: RIVAROXABAN
  8. SIMVASTATIN [Concomitant]
     Active Substance: SIMVASTATIN
  9. SPIRONOLACTONE [Concomitant]
     Active Substance: SPIRONOLACTONE

REACTIONS (1)
  - Ketoacidosis [Unknown]

NARRATIVE: CASE EVENT DATE: 20211015
